FAERS Safety Report 4477052-6 (Version None)
Quarter: 2004Q4

REPORT INFORMATION
  Report Type: 
  Country: None (occurrence: None)
  Receive Date: 20041018
  Receipt Date: 20041005
  Transmission Date: 20050328
  Serious: Yes (Hospitalization)
  Sender: FDA-Public Use
  Company Number: BE-BRISTOL-MYERS SQUIBB COMPANY-12722484

PATIENT
  Age: 70 Year
  Sex: Male

DRUGS (9)
  1. CARBOPLATIN [Suspect]
     Indication: MESOTHELIOMA
     Route: 042
     Dates: start: 20040614, end: 20040614
  2. PEMETREXED DISODIUM [Suspect]
     Indication: MESOTHELIOMA
     Route: 042
     Dates: start: 20040614, end: 20040614
  3. ZOFRAN [Concomitant]
     Dates: start: 20040906, end: 20040906
  4. NOVABAN [Concomitant]
  5. MEDROL [Concomitant]
     Dates: start: 20040907, end: 20040911
  6. TEMESTA [Concomitant]
     Dates: start: 20040907, end: 20040911
  7. PRIMPERAN INJ [Concomitant]
     Dates: start: 20040907, end: 20040911
  8. DEXAMETHASONE [Concomitant]
     Dates: start: 20040905, end: 20040907
  9. FOLIC ACID [Concomitant]
     Dates: start: 20040602

REACTIONS (1)
  - VENTRICULAR FLUTTER [None]
